FAERS Safety Report 6063211-8 (Version None)
Quarter: 2009Q1

REPORT INFORMATION
  Report Type: 
  Country: None (occurrence: None)
  Receive Date: 20090129
  Receipt Date: 20081031
  Transmission Date: 20090719
  Serious: Yes (Other)
  Sender: FDA-Public Use
  Company Number: 2009PL000020

PATIENT
  Sex: Male

DRUGS (2)
  1. AZATHIOPRINE [Suspect]
     Indication: RENAL TRANSPLANT
  2. PREDNISONE [Concomitant]

REACTIONS (1)
  - BILE DUCT CANCER [None]
